FAERS Safety Report 9545835 (Version 2)
Quarter: 2013Q4

REPORT INFORMATION
  Report Type: Spontaneous
  Country: IT (occurrence: IT)
  Receive Date: 20130923
  Receipt Date: 20131119
  Transmission Date: 20140711
  Serious: Yes (Other)
  Sender: FDA-Public Use
  Company Number: IT-WATSON-2013-16545

PATIENT
  Age: 54 Year
  Sex: Female

DRUGS (2)
  1. IBUPROFEN (UNKNOWN) [Suspect]
     Indication: MALAISE
     Dosage: 200 MG, DAILY
     Route: 048
     Dates: start: 20130902, end: 20130904
  2. TRIMETHOPRIM-SULFAMETHOXAZOLE (UNKNOWN) [Suspect]
     Indication: URINARY TRACT INFECTION BACTERIAL
     Dosage: 2 DF, DAILY
     Route: 048
     Dates: start: 20130902, end: 20130904

REACTIONS (2)
  - Erythema [Recovered/Resolved]
  - Pruritus [Recovered/Resolved]
